FAERS Safety Report 19690393 (Version 1)
Quarter: 2021Q3

REPORT INFORMATION
  Report Type: Spontaneous
  Country: US (occurrence: US)
  Receive Date: 20210812
  Receipt Date: 20210812
  Transmission Date: 20211014
  Serious: Yes (Other)
  Sender: FDA-Public Use
  Company Number: US-SNT-000173

PATIENT
  Age: 53 Year
  Sex: Female

DRUGS (6)
  1. EFAVIRENZ. [Suspect]
     Active Substance: EFAVIRENZ
     Indication: RETROVIRAL INFECTION
     Route: 065
  2. RALTEGRAVIR. [Suspect]
     Active Substance: RALTEGRAVIR
     Indication: RETROVIRAL INFECTION
     Route: 065
  3. PREDNISONE. [Suspect]
     Active Substance: PREDNISONE
     Indication: IMMUNOSUPPRESSION
     Dosage: 15 MG TO 10 MG
     Route: 065
  4. AMPHOTERICIN B. [Suspect]
     Active Substance: AMPHOTERICIN B
     Indication: MUCORMYCOSIS
     Dosage: 5 ML/KG
     Route: 065
  5. MYCOPHENOLIC ACID. [Suspect]
     Active Substance: MYCOPHENOLIC ACID
     Indication: IMMUNOSUPPRESSION
     Route: 065
  6. POSACONAZOLE [Suspect]
     Active Substance: POSACONAZOLE
     Indication: PRODUCT USE IN UNAPPROVED INDICATION
     Route: 065

REACTIONS (7)
  - Product use in unapproved indication [Unknown]
  - Glomerulosclerosis [Unknown]
  - Renal impairment [Unknown]
  - Disease recurrence [Unknown]
  - Vascular hyalinosis [Unknown]
  - Debridement [Unknown]
  - Diabetic nephropathy [Unknown]
